FAERS Safety Report 7960623-X (Version None)
Quarter: 2011Q4

REPORT INFORMATION
  Report Type: 
  Country: None (occurrence: None)
  Receive Date: 20111206
  Receipt Date: 20111129
  Transmission Date: 20120403
  Serious: Yes (Hospitalization)
  Sender: FDA-Public Use
  Company Number: PL-ABBOTT-11P-129-0875802-00

PATIENT
  Age: 58 Year
  Sex: Female

DRUGS (3)
  1. CARBAMAZEPINE [Concomitant]
     Indication: MOOD DISORDER DUE TO A GENERAL MEDICAL CONDITION
  2. VALPROATE SODIUM [Suspect]
     Indication: MOOD DISORDER DUE TO A GENERAL MEDICAL CONDITION
     Route: 048
  3. VALPROATE SODIUM [Suspect]
     Indication: SUICIDE ATTEMPT

REACTIONS (22)
  - EPISTAXIS [None]
  - INTENTIONAL OVERDOSE [None]
  - TACHYPNOEA [None]
  - RHONCHI [None]
  - LOSS OF CONSCIOUSNESS [None]
  - ANAEMIA [None]
  - SUICIDE ATTEMPT [None]
  - MYDRIASIS [None]
  - THROMBOCYTOPENIA [None]
  - LEUKOPENIA [None]
  - OXYGEN SATURATION DECREASED [None]
  - PANCYTOPENIA [None]
  - RALES [None]
  - TRANSAMINASES INCREASED [None]
  - ASPARTATE AMINOTRANSFERASE INCREASED [None]
  - ALANINE AMINOTRANSFERASE INCREASED [None]
  - INTERNATIONAL NORMALISED RATIO INCREASED [None]
  - ACUTE RESPIRATORY FAILURE [None]
  - BLOOD CREATINE PHOSPHOKINASE INCREASED [None]
  - AMMONIA INCREASED [None]
  - LOWER RESPIRATORY TRACT INFECTION [None]
  - PSYCHOMOTOR HYPERACTIVITY [None]
